FAERS Safety Report 9841543 (Version 1)
Quarter: 2013Q4

REPORT INFORMATION
  Report Type: Spontaneous
  Country: US (occurrence: None)
  Receive Date: 20131223
  Receipt Date: 20131223
  Transmission Date: 20140711
  Serious: No
  Sender: FDA-Public Use
  Company Number: 221805LEO

PATIENT
  Age: 68 Year
  Sex: Male

DRUGS (1)
  1. PICATO [Suspect]
     Indication: ACTINIC KERATOSIS
     Dosage: 1 IN 1 D, TOPICAL
     Dates: start: 20130422, end: 20130424

REACTIONS (3)
  - Application site swelling [None]
  - Application site pruritus [None]
  - Application site exfoliation [None]
